FAERS Safety Report 5432984-7 (Version None)
Quarter: 2007Q3

REPORT INFORMATION
  Report Type: 
  Country: None (occurrence: None)
  Receive Date: 20070831
  Receipt Date: 20070822
  Transmission Date: 20080115
  Serious: Yes (Death)
  Sender: FDA-Public Use
  Company Number: BE-JNJFOC-20070805373

PATIENT
  Age: 65 Year
  Sex: Female

DRUGS (4)
  1. ZALDIAR [Suspect]
     Indication: ANALGESIA
     Route: 048
  2. LEVOTHYROXINE SODIUM [Concomitant]
     Route: 065
  3. SIMVASTATIN [Concomitant]
     Route: 065
  4. BISOPROLOL [Concomitant]
     Route: 065

REACTIONS (2)
  - CARDIAC ARREST [None]
  - DYSPNOEA [None]
